FAERS Safety Report 12219577 (Version 1)
Quarter: 2016Q1

REPORT INFORMATION
  Report Type: Spontaneous
  Country: HU (occurrence: HU)
  Receive Date: 20160329
  Receipt Date: 20160329
  Transmission Date: 20160526
  Serious: Yes (Other)
  Sender: FDA-Public Use
  Company Number: PHHY2016HU039203

PATIENT
  Age: 53 Year
  Sex: Male

DRUGS (2)
  1. LEVOFLOXACIN SANDOZ [Suspect]
     Active Substance: LEVOFLOXACIN
     Indication: PROSTATISM
     Dosage: 500 MG, QD
     Route: 048
     Dates: start: 20160307, end: 20160307
  2. MYDETON [Concomitant]
     Indication: MUSCLE TIGHTNESS
     Dosage: 150 MG, UNK
     Route: 048

REACTIONS (4)
  - Heart rate irregular [Recovered/Resolved]
  - Hallucination [Recovered/Resolved]
  - Dyspnoea [Recovered/Resolved]
  - Insomnia [Recovered/Resolved]

NARRATIVE: CASE EVENT DATE: 20160307
